FAERS Safety Report 10305821 (Version 1)
Quarter: 2014Q3

REPORT INFORMATION
  Report Type: Spontaneous
  Country: US (occurrence: US)
  Receive Date: 20140715
  Receipt Date: 20140715
  Transmission Date: 20150326
  Serious: No
  Sender: FDA-Public Use
  Company Number: US-B.I. PHARMACEUTICALS,INC./RIDGEFIELD-2014-BI-30176BP

PATIENT
  Sex: Female
  Weight: 40 kg

DRUGS (3)
  1. MYLANTA [Concomitant]
     Active Substance: ALUMINUM HYDROXIDE\MAGNESIUM HYDROXIDE\SIMETHICONE
     Indication: DYSPEPSIA
     Route: 048
     Dates: start: 20140611
  2. ZANTAC [Suspect]
     Active Substance: RANITIDINE HYDROCHLORIDE
     Indication: DYSPEPSIA
     Dosage: 300 MG
     Route: 048
     Dates: start: 201307, end: 201307
  3. SYNTHROID [Concomitant]
     Active Substance: LEVOTHYROXINE SODIUM
     Indication: HYPOTHYROIDISM
     Dosage: 100 MCG
     Route: 048
     Dates: start: 1994

REACTIONS (5)
  - Nausea [Recovered/Resolved]
  - Stress fracture [Recovered/Resolved]
  - Osteoporosis [Not Recovered/Not Resolved]
  - Drug ineffective [Unknown]
  - Dyspepsia [Recovered/Resolved]

NARRATIVE: CASE EVENT DATE: 2013
